FAERS Safety Report 14132918 (Version 1)
Quarter: 2017Q4

REPORT INFORMATION
  Report Type: Report from Study
  Country: None (occurrence: BR)
  Receive Date: 20171027
  Receipt Date: 20171027
  Transmission Date: 20180321
  Serious: Yes (Other)
  Sender: FDA-Public Use
  Company Number: BR-ABBVIE-17K-020-2021456-00

PATIENT
  Sex: Female
  Weight: 65 kg

DRUGS (1)
  1. HUMIRA [Suspect]
     Active Substance: ADALIMUMAB
     Indication: PSORIATIC ARTHROPATHY
     Route: 058
     Dates: start: 20170609

REACTIONS (5)
  - Pain [Unknown]
  - Malaise [Recovered/Resolved]
  - Spinal disorder [Unknown]
  - Psoriatic arthropathy [Unknown]
  - Wound [Unknown]

NARRATIVE: CASE EVENT DATE: 2017
